FAERS Safety Report 4633155-4 (Version None)
Quarter: 2005Q2

REPORT INFORMATION
  Report Type: 
  Country: None (occurrence: None)
  Receive Date: 20050411
  Receipt Date: 20050411
  Transmission Date: 20051028
  Serious: Yes (Hospitalization)
  Sender: FDA-Public Use
  Company Number: None

PATIENT
  Age: 82 Year
  Sex: Male
  Weight: 62 kg

DRUGS (17)
  1. WARFARIN 2MG TABLETS DUPONT [Suspect]
     Indication: AORTIC VALVE REPLACEMENT
     Dosage: 1MG/2MG QMON/RO W  ORAL
     Route: 048
     Dates: start: 20010101, end: 20050315
  2. WARFARIN 2MG TABLETS DUPONT [Suspect]
     Indication: CORONARY ARTERY DISEASE
     Dosage: 1MG/2MG QMON/RO W  ORAL
     Route: 048
     Dates: start: 20010101, end: 20050315
  3. WARFARIN 2MG TABLETS DUPONT [Suspect]
     Indication: CORONARY ARTERY SURGERY
     Dosage: 1MG/2MG QMON/RO W  ORAL
     Route: 048
     Dates: start: 20010101, end: 20050315
  4. WARFARIN 2MG TABLETS DUPONT [Suspect]
     Indication: IMPLANTABLE DEFIBRILLATOR INSERTION
     Dosage: 1MG/2MG QMON/RO W  ORAL
     Route: 048
     Dates: start: 20010101, end: 20050315
  5. WARFARIN 2MG TABLETS DUPONT [Suspect]
     Indication: PERIPHERAL VASCULAR DISORDER
     Dosage: 1MG/2MG QMON/RO W  ORAL
     Route: 048
     Dates: start: 20010101, end: 20050315
  6. AMIODARONE HCL [Concomitant]
  7. AMLODIPINE [Concomitant]
  8. CLOPIDOGREL [Concomitant]
  9. DIGOXIN [Concomitant]
  10. FOSINOPRIL [Concomitant]
  11. POTASSIUM CHLORIDE [Concomitant]
  12. RANITIDINE [Concomitant]
  13. GLYBURIDE [Concomitant]
  14. TEMAZEPAM [Concomitant]
  15. LOVASTATIN [Concomitant]
  16. CARVEDILOL [Concomitant]
  17. NITROGLYCERIN [Concomitant]

REACTIONS (4)
  - CHEST PAIN [None]
  - DYSPNOEA [None]
  - DYSPNOEA EXERTIONAL [None]
  - FAECES DISCOLOURED [None]
